FAERS Safety Report 16734601 (Version 1)
Quarter: 2019Q3

REPORT INFORMATION
  Report Type: Spontaneous
  Country: SI (occurrence: SI)
  Receive Date: 20190823
  Receipt Date: 20190823
  Transmission Date: 20191005
  Serious: Yes (Hospitalization, Other)
  Sender: FDA-Public Use
  Company Number: SI-ACCORD-048658

PATIENT
  Age: 69 Year
  Sex: Male

DRUGS (6)
  1. STALEVO [Suspect]
     Active Substance: CARBIDOPA\ENTACAPONE\LEVODOPA
     Indication: PARKINSON^S DISEASE
     Dosage: 1 TABLET BEFORE GOING TO BED (1 DF)
     Route: 048
  2. PANTOPRAZOLE [Concomitant]
     Active Substance: PANTOPRAZOLE
     Dosage: 20 MG
  3. CARBIDOPA/LEVODOPA [Suspect]
     Active Substance: CARBIDOPA\LEVODOPA
     Indication: PARKINSON^S DISEASE
     Dosage: 9 ML IN THE MORNING, 3.5 ML PER HOUR DURING THE DAY FOR 16 HOURS,2.5-ML BOLUS IF NEEDED,TWICE DAILY
  4. MADOPAR [Suspect]
     Active Substance: BENSERAZIDE HYDROCHLORIDE\LEVODOPA
     Indication: PARKINSON^S DISEASE
     Dosage: 100 MG/25 MG IN THE MORNING (1 TABLET IF NEEDED) (1 DF)
     Route: 048
  5. QUETIAPINE/QUETIAPINE FUMARATE [Concomitant]
     Dosage: 1 TABLET BEFORE BED (100 MG)
  6. FLUDROCORTISONE [Concomitant]
     Active Substance: FLUDROCORTISONE
     Dosage: 0.1 MG

REACTIONS (6)
  - Condition aggravated [Recovering/Resolving]
  - Dyskinesia [Recovering/Resolving]
  - Weight decreased [Unknown]
  - Dystonia [Recovering/Resolving]
  - Protrusion tongue [Recovering/Resolving]
  - Dysphagia [Recovering/Resolving]
